FAERS Safety Report 6368374-2 (Version None)
Quarter: 2009Q3

REPORT INFORMATION
  Report Type: 
  Country: None (occurrence: None)
  Receive Date: 20090922
  Receipt Date: 20090821
  Transmission Date: 20100115
  Serious: No
  Sender: FDA-Public Use
  Company Number: US-BAYER-200913652BCC

PATIENT
  Age: 81 Year
  Sex: Male
  Weight: 81 kg

DRUGS (4)
  1. ALEVE (CAPLET) [Suspect]
     Indication: NERVE COMPRESSION
     Dosage: TOTAL DAILY DOSE: 440 MG  UNIT DOSE: 220 MG
     Route: 048
     Dates: start: 20090801
  2. UNKNOWN DRUG [Concomitant]
     Indication: HYPERTENSION
     Route: 065
  3. HYDROCORT [Concomitant]
     Route: 065
  4. TERROZIN [Concomitant]
     Route: 065

REACTIONS (1)
  - ABDOMINAL DISCOMFORT [None]
